FAERS Safety Report 8410018-X (Version None)
Quarter: 2012Q2

REPORT INFORMATION
  Report Type: 
  Country: None (occurrence: None)
  Receive Date: 20120323
  Receipt Date: 20111010
  Transmission Date: 20120825
  Serious: Yes (Other)
  Sender: FDA-Public Use
  Company Number: 163-21880-11101240

PATIENT
  Age: 72 Year
  Sex: Male
  Weight: 110.2241 kg

DRUGS (5)
  1. ATENOLOL [Concomitant]
  2. INSULIN (INSULIN)(UNKNOWN) [Concomitant]
  3. HCTZ (HYDROCHLOROTHIAZIDE)(UNKNOWN) [Concomitant]
  4. ENALAPRIL MALEATE [Concomitant]
  5. REVLIMID [Suspect]
     Indication: MULTIPLE MYELOMA
     Dosage: 25 MG, DAILY FOR  21 DAYS, PO
     Route: 048
     Dates: start: 20100801

REACTIONS (6)
  - LOSS OF CONSCIOUSNESS [None]
  - PYREXIA [None]
  - HYPERHIDROSIS [None]
  - ASTHENIA [None]
  - DIZZINESS [None]
  - SOMNOLENCE [None]
